FAERS Safety Report 5685009-2 (Version None)
Quarter: 2008Q1

REPORT INFORMATION
  Report Type: 
  Country: None (occurrence: None)
  Receive Date: 20080328
  Receipt Date: 20080320
  Transmission Date: 20080703
  Serious: Yes (Death, Other)
  Sender: FDA-Public Use
  Company Number: HQWYE730029NOV05

PATIENT
  Sex: Female

DRUGS (3)
  1. PREMARIN [Suspect]
  2. MEDROXYPROGESTERONE [Suspect]
  3. PROVERA [Suspect]

REACTIONS (2)
  - BREAST CANCER METASTATIC [None]
  - HEPATORENAL SYNDROME [None]
